FAERS Safety Report 8182201-2 (Version None)
Quarter: 2012Q1

REPORT INFORMATION
  Report Type: 
  Country: None (occurrence: None)
  Receive Date: 20120302
  Receipt Date: 20120222
  Transmission Date: 20120608
  Serious: Yes (Other)
  Sender: FDA-Public Use
  Company Number: US-ASTRAZENECA-2011SE43967

PATIENT
  Age: 51 Year
  Sex: Male

DRUGS (2)
  1. PREVACID [Suspect]
  2. NEXIUM [Suspect]
     Route: 048

REACTIONS (7)
  - FEELING ABNORMAL [None]
  - ABDOMINAL PAIN UPPER [None]
  - CONDITION AGGRAVATED [None]
  - LUNG DISORDER [None]
  - GASTRIC DISORDER [None]
  - MALAISE [None]
  - DRUG DOSE OMISSION [None]
